FAERS Safety Report 7776393-4 (Version None)
Quarter: 2011Q3

REPORT INFORMATION
  Report Type: 
  Country: None (occurrence: None)
  Receive Date: 20110926
  Receipt Date: 20110921
  Transmission Date: 20111222
  Serious: Yes (Other)
  Sender: FDA-Public Use
  Company Number: US-PFIZER INC-2011152909

PATIENT
  Sex: Female
  Weight: 90.703 kg

DRUGS (5)
  1. DILANTIN [Suspect]
     Dosage: UNK
  2. KLONOPIN [Suspect]
     Indication: CONVULSION
     Dosage: 0.5 MG, DAILY
     Route: 048
     Dates: start: 20040101
  3. DILANTIN [Suspect]
     Dosage: 400 MG, DAILY
     Route: 048
     Dates: start: 19720101
  4. KLONOPIN [Concomitant]
     Dosage: 0.5 MG, 2X/DAY
  5. DILANTIN [Suspect]
     Indication: CONVULSION
     Dosage: 500MG DAILY
     Dates: end: 19960101

REACTIONS (3)
  - ANTICONVULSANT DRUG LEVEL INCREASED [None]
  - DEPRESSED MOOD [None]
  - ANXIETY [None]
